FAERS Safety Report 11769326 (Version 1)
Quarter: 2015Q4

REPORT INFORMATION
  Report Type: Spontaneous
  Country: DE (occurrence: DE)
  Receive Date: 20151123
  Receipt Date: 20151123
  Transmission Date: 20160304
  Serious: Yes (Other)
  Sender: FDA-Public Use
  Company Number: ALCN2015DE007118

PATIENT
  Sex: Female
  Weight: 63 kg

DRUGS (2)
  1. LACRISIC SE [Suspect]
     Active Substance: GLYCERIN\HYPROMELLOSES
     Indication: DRY EYE
     Dosage: 1 DF, ONCE/SINGLE
     Route: 047
     Dates: start: 20151009, end: 20151009
  2. LACRISIC SE [Suspect]
     Active Substance: GLYCERIN\HYPROMELLOSES
     Indication: LACRIMATION INCREASED
     Dosage: 1 DF, ONCE/SINGLE
     Route: 047
     Dates: start: 20151010, end: 20151010

REACTIONS (1)
  - Vision blurred [Not Recovered/Not Resolved]

NARRATIVE: CASE EVENT DATE: 20151009
